FAERS Safety Report 24833078 (Version 1)
Quarter: 2025Q1

REPORT INFORMATION
  Report Type: Spontaneous
  Country: ES (occurrence: ES)
  Receive Date: 20250111
  Receipt Date: 20250111
  Transmission Date: 20250408
  Serious: Yes (Hospitalization, Other)
  Sender: AUROBINDO
  Company Number: ES-AEMPS-1608625

PATIENT
  Age: 33 Year
  Sex: Male
  Weight: 92.4 kg

DRUGS (4)
  1. MEROPENEM [Suspect]
     Active Substance: MEROPENEM
     Indication: Febrile neutropenia
     Dosage: 2 GRAM, 3 TIMES A DAY (2 GRAMS EVERY 8 HOURS)
     Route: 042
     Dates: start: 20241010, end: 20241013
  2. CISPLATIN [Concomitant]
     Active Substance: CISPLATIN
     Indication: Testicular germ cell cancer
     Route: 042
     Dates: start: 20241004, end: 20241004
  3. BLEOMYCIN SULFATE [Concomitant]
     Active Substance: BLEOMYCIN SULFATE
     Indication: Testicular germ cell cancer
     Route: 042
     Dates: start: 20241004, end: 20241004
  4. ETOPOSIDE [Concomitant]
     Active Substance: ETOPOSIDE
     Indication: Testicular germ cell cancer
     Route: 042
     Dates: start: 20241004, end: 20241004

REACTIONS (1)
  - Clostridium difficile colitis [Recovering/Resolving]

NARRATIVE: CASE EVENT DATE: 20241012
